FAERS Safety Report 19707417 (Version 2)
Quarter: 2021Q4

REPORT INFORMATION
  Report Type: Spontaneous
  Country: CA (occurrence: None)
  Receive Date: 20210817
  Receipt Date: 20211105
  Transmission Date: 20220303
  Serious: Yes (Other)
  Sender: FDA-Public Use
  Company Number: 2021A673877

PATIENT
  Age: 20 Year
  Sex: Female

DRUGS (1)
  1. QUETIAPINE [Suspect]
     Active Substance: QUETIAPINE
     Indication: Depression
     Dosage: UNKNOWN
     Route: 048

REACTIONS (2)
  - Blindness [Recovered/Resolved]
  - Vision blurred [Recovered/Resolved]
